FAERS Safety Report 8989997 (Version 2)
Quarter: 2013Q1

REPORT INFORMATION
  Report Type: Spontaneous
  Country: KR (occurrence: KP)
  Receive Date: 20121228
  Receipt Date: 20130107
  Transmission Date: 20140127
  Serious: Yes (Other)
  Sender: FDA-Public Use
  Company Number: KR-BAXTER-2012BAX028491

PATIENT
  Age: 52 Year
  Sex: Male
  Weight: 71 kg

DRUGS (9)
  1. DIANEAL PD-2 2.5% [Suspect]
     Indication: RENAL FAILURE CHRONIC
     Route: 033
     Dates: start: 20071125, end: 20121217
  2. DIANEAL PD-2 2.5% [Suspect]
     Indication: PERITONEAL DIALYSIS
     Route: 033
     Dates: start: 20121217
  3. EXTRANEAL [Suspect]
     Indication: RENAL FAILURE CHRONIC
     Route: 033
     Dates: start: 20071125
  4. EXTRANEAL [Suspect]
     Indication: PERITONEAL DIALYSIS
  5. ALAXYL [Suspect]
     Indication: CONSTIPATION
     Dosage: 1 PKG
     Route: 048
     Dates: start: 20121214, end: 20121216
  6. APROVEL [Concomitant]
     Indication: HYPERTENSION
     Dosage: 150MG HALF TAB (0.5T)
     Route: 048
     Dates: end: 20121217
  7. TENORMIN [Concomitant]
     Indication: HYPERTENSION
     Dosage: 25MG HALF TAB (0.5T)
     Route: 048
     Dates: end: 20121217
  8. NIFEDIPINE [Concomitant]
     Indication: HYPERTENSION
     Dosage: 1T (TAB. 60)
     Route: 048
     Dates: end: 20121217
  9. NIFEDIPINE [Concomitant]
     Dosage: 1T (TAB. 30)
     Route: 048
     Dates: end: 20121217

REACTIONS (4)
  - Diarrhoea [Recovered/Resolved]
  - Weight decreased [Recovered/Resolved]
  - Constipation [Recovered/Resolved]
  - Blood pressure decreased [Recovered/Resolved]
